FAERS Safety Report 9518314 (Version 1)
Quarter: 2013Q1

REPORT INFORMATION
  Report Type: Spontaneous
  Country: US (occurrence: None)
  Receive Date: 20130305
  Receipt Date: 20130305
  Transmission Date: 20140127
  Serious: Yes (Other)
  Sender: FDA-Public Use
  Company Number: 163-21880-12121344

PATIENT
  Age: 87 Year
  Sex: Male
  Weight: 90 kg

DRUGS (3)
  1. REVLIMID [Suspect]
     Indication: MYELODYSPLASTIC SYNDROME
     Route: 048
     Dates: start: 20121114, end: 2012
  2. ARANESP(DARBEPOETIN ALFA) [Concomitant]
  3. BLOOD  TRANSFUSIONS (BLOOD TRANSFUION, AUXILIARY PRODUCTS(INJECTION) [Concomitant]

REACTIONS (2)
  - Chills [None]
  - Nausea [None]
